FAERS Safety Report 21580541 (Version 1)
Quarter: 2022Q4

REPORT INFORMATION
  Report Type: Report from Study
  Country: NG (occurrence: NG)
  Receive Date: 20221110
  Receipt Date: 20221110
  Transmission Date: 20230113
  Serious: Yes (Death, Life-Threatening)
  Sender: FDA-Public Use
  Company Number: NG-GBT-017851

PATIENT
  Sex: Male
  Weight: 22.7 kg

DRUGS (4)
  1. PLACEBO [Suspect]
     Active Substance: UNSPECIFIED INGREDIENT
     Indication: Sickle cell disease
     Dosage: ON 30-OCT-2022, THE SUBJECT RECEIVED THE LAST DOSE OF THE BLINDED STUDY PRODUCT PRIOR TO EVENT ON...
  2. FOLIC ACID [Concomitant]
     Active Substance: FOLIC ACID
     Indication: Sickle cell disease
     Dosage: 5 MG ONCE
     Route: 048
     Dates: start: 20100402
  3. PALUDRINE [Concomitant]
     Active Substance: PROGUANIL HYDROCHLORIDE
     Indication: Sickle cell disease
     Dosage: 100 MG ONCE
     Route: 048
     Dates: start: 20100402
  4. PENICILLIN V [Concomitant]
     Active Substance: PENICILLIN V
     Indication: Sickle cell disease
     Dosage: 250 MG ONCE
     Route: 048
     Dates: start: 20100402

REACTIONS (1)
  - Sudden death [Fatal]

NARRATIVE: CASE EVENT DATE: 20221102
